FAERS Safety Report 6028206-9 (Version None)
Quarter: 2009Q1

REPORT INFORMATION
  Report Type: 
  Country: None (occurrence: None)
  Receive Date: 20090106
  Receipt Date: 20090105
  Transmission Date: 20090719
  Serious: Yes (Life-Threatening, Other)
  Sender: FDA-Public Use
  Company Number: US-BRISTOL-MYERS SQUIBB COMPANY-14460760

PATIENT
  Age: 40 Year
  Sex: Female

DRUGS (5)
  1. ABILIFY [Suspect]
     Indication: SCHIZOAFFECTIVE DISORDER
     Route: 048
     Dates: start: 20070801, end: 20080603
  2. DEPAKENE [Suspect]
     Indication: SCHIZOAFFECTIVE DISORDER
     Dosage: FORMULATION-SYRUP
     Route: 048
     Dates: start: 20071001, end: 20080603
  3. DEPAKOTE ER [Suspect]
     Indication: SCHIZOAFFECTIVE DISORDER
     Route: 048
     Dates: end: 20071001
  4. CLONAZEPAM [Concomitant]
     Indication: AGITATION
     Dosage: AT LEAST 1-2YRS, 4.5MG (0.5MG AT MORNING, 1MG IN EVENING, 3MG AT BED TIME)
     Route: 048
  5. TRAZODONE HCL [Concomitant]
     Indication: SLEEP DISORDER
     Dosage: AT BED TIME
     Route: 048
     Dates: start: 20070801

REACTIONS (3)
  - BLOOD COUNT ABNORMAL [None]
  - CONTUSION [None]
  - DYSPHAGIA [None]
